FAERS Safety Report 18159439 (Version 2)
Quarter: 2020Q4

REPORT INFORMATION
  Report Type: Report from Study
  Country: PL (occurrence: PL)
  Receive Date: 20200817
  Receipt Date: 20201001
  Transmission Date: 20210113
  Serious: Yes (Hospitalization)
  Sender: FDA-Public Use
  Company Number: PL-EXELIXIS-XL18420032025

PATIENT
  Age: 49 Year
  Sex: Male

DRUGS (13)
  1. METYPRED [Concomitant]
     Active Substance: METHYLPREDNISOLONE
  2. BISEPTOL [Concomitant]
     Active Substance: SULFAMETHOXAZOLE\TRIMETHOPRIM
  3. IPILIMUMAB [Suspect]
     Active Substance: IPILIMUMAB
     Indication: RENAL CELL CARCINOMA
     Dosage: 1 MG/KG, Q3WEEKS, 4 DOSES
     Route: 042
     Dates: start: 20200514
  4. NIVOLUMAB [Suspect]
     Active Substance: NIVOLUMAB
     Indication: RENAL CELL CARCINOMA
     Dosage: 3 MG/KG, Q3WEEKS, 4 DOSES
     Route: 042
     Dates: start: 20200514
  5. PANTOPRAZOLUM FARMACOM [Concomitant]
  6. MYCOFIT [Concomitant]
     Active Substance: MYCOPHENOLATE MOFETIL
  7. HEVIRAN [Concomitant]
     Active Substance: ACYCLOVIR
  8. TORAMIDE [Concomitant]
  9. PRIMACOR [Concomitant]
     Active Substance: MILRINONE LACTATE
  10. XL184 [Suspect]
     Active Substance: CABOZANTINIB
     Indication: RENAL CELL CARCINOMA
     Dosage: 40 MG, QD
     Route: 048
     Dates: start: 20200514
  11. NEOPARIN [Concomitant]
     Active Substance: ENOXAPARIN SODIUM
  12. NEDAL [Concomitant]
     Active Substance: NEBIVOLOL HYDROCHLORIDE
  13. VALSACOR [Concomitant]
     Active Substance: VALSARTAN

REACTIONS (1)
  - Cardiotoxicity [Recovered/Resolved]

NARRATIVE: CASE EVENT DATE: 20200807
